FAERS Safety Report 25902982 (Version 1)
Quarter: 2025Q4

REPORT INFORMATION
  Report Type: Spontaneous
  Country: US (occurrence: None)
  Receive Date: 20251009
  Receipt Date: 20251009
  Transmission Date: 20260118
  Serious: Yes (Disabling)
  Sender: FDA-CTU
  Company Number: None

PATIENT
  Age: 51 Year
  Sex: Female
  Weight: 67.5 kg

DRUGS (12)
  1. EMGALITY [Suspect]
     Active Substance: GALCANEZUMAB-GNLM
     Indication: Migraine
     Dosage: OTHER STRENGTH : 120 MG/ML MG MILLI;?OTHER QUANTITY : 2 INJECTION(S);?OTHER FREQUENCY : MONTHLY;?
     Route: 030
     Dates: start: 20251006
  2. ZOLOFT [Concomitant]
     Active Substance: SERTRALINE HYDROCHLORIDE
  3. TRAZODONE [Concomitant]
     Active Substance: TRAZODONE HYDROCHLORIDE
  4. Estradiol 1.5mn/day Progesterone 200mg/night [Concomitant]
  5. ESOMEPRAZOLE [Concomitant]
     Active Substance: ESOMEPRAZOLE
  6. RITUXIMAB [Concomitant]
     Active Substance: RITUXIMAB
  7. XIIDRA [Concomitant]
     Active Substance: LIFITEGRAST
  8. Artificial tears [Concomitant]
  9. COD LIVER OIL [Concomitant]
     Active Substance: COD LIVER OIL
  10. Ca [Concomitant]
  11. enzymes [Concomitant]
  12. VITAMINS [Concomitant]
     Active Substance: VITAMINS

REACTIONS (4)
  - Back pain [None]
  - Loss of personal independence in daily activities [None]
  - Pain [None]
  - Fatigue [None]

NARRATIVE: CASE EVENT DATE: 20251007
